FAERS Safety Report 6251551-9 (Version None)
Quarter: 2009Q2

REPORT INFORMATION
  Report Type: 
  Country: None (occurrence: None)
  Receive Date: 20090630
  Receipt Date: 20090626
  Transmission Date: 20091009
  Serious: Yes (Death)
  Sender: FDA-Public Use
  Company Number: JP-WATSON-2009-04942

PATIENT
  Age: 60 Year
  Sex: Male

DRUGS (2)
  1. FLUOROURACIL [Suspect]
     Indication: OESOPHAGEAL CARCINOMA
     Dosage: 700 MG/M2CI DAY1-5
     Route: 042
     Dates: start: 20001101, end: 20080301
  2. NEDAPLATIN [Suspect]
     Indication: OESOPHAGEAL CARCINOMA
     Dosage: 80MG/M2DIV DAY1
     Dates: start: 20001101, end: 20080301

REACTIONS (1)
  - ACUTE MYELOID LEUKAEMIA [None]
